FAERS Safety Report 13370748 (Version 1)
Quarter: 2017Q1

REPORT INFORMATION
  Report Type: Spontaneous
  Country: CH (occurrence: CH)
  Receive Date: 20170324
  Receipt Date: 20170324
  Transmission Date: 20170429
  Serious: Yes (Hospitalization)
  Sender: FDA-Public Use
  Company Number: CH-BAYER-2017-050076

PATIENT
  Age: 68 Year
  Sex: Male
  Weight: 90.88 kg

DRUGS (8)
  1. TRITTICO [Suspect]
     Active Substance: TRAZODONE HYDROCHLORIDE
     Indication: PANIC ATTACK
  2. NOVALGIN [Suspect]
     Active Substance: METAMIZOLE SODIUM
     Indication: ARTHRALGIA
     Dosage: 500 MG, BID
     Route: 048
     Dates: start: 2015, end: 20170221
  3. BRUFEN [Concomitant]
     Active Substance: IBUPROFEN
     Indication: ANALGESIC THERAPY
     Dates: start: 20170212
  4. PANTOPRAZOLE [Suspect]
     Active Substance: PANTOPRAZOLE SODIUM
     Indication: GASTROOESOPHAGEAL REFLUX DISEASE
     Dosage: 20 MG, QD
     Dates: end: 20170227
  5. ASPIRIN CARDIO 100 MG [Suspect]
     Active Substance: ASPIRIN
     Dosage: 100 MG, QD
     Dates: end: 20170227
  6. TRITTICO [Suspect]
     Active Substance: TRAZODONE HYDROCHLORIDE
     Indication: SCHIZOAFFECTIVE DISORDER
     Dosage: 50 MG, QD
     Dates: end: 20170221
  7. DAFALGAN [Suspect]
     Active Substance: ACETAMINOPHEN
     Indication: ARTHRALGIA
     Dosage: 1 G, QD
     Dates: end: 20170221
  8. SERESTA [Suspect]
     Active Substance: OXAZEPAM
     Dosage: 15 MG, QD

REACTIONS (6)
  - Pyrexia [Unknown]
  - Abnormal loss of weight [Unknown]
  - Agranulocytosis [Unknown]
  - Chest pain [Unknown]
  - Dysphagia [Unknown]
  - Oesophageal candidiasis [Unknown]

NARRATIVE: CASE EVENT DATE: 20170212
